FAERS Safety Report 7215357-6 (Version None)
Quarter: 2011Q1

REPORT INFORMATION
  Report Type: 
  Country: None (occurrence: None)
  Receive Date: 20110105
  Receipt Date: 20110105
  Transmission Date: 20110831
  Serious: Yes (Hospitalization)
  Sender: FDA-Public Use
  Company Number: None

PATIENT
  Sex: Female
  Weight: 63.6 kg

DRUGS (9)
  1. CIPROFLOXACIN [Concomitant]
  2. TRAZODONE HCL [Concomitant]
  3. LISINOPRIL AND HYDROCHLOROTHIAZIDE [Concomitant]
  4. PROCHLORPERAZINE [Concomitant]
  5. ZOLPIDEM [Concomitant]
  6. TAXOTERE [Suspect]
     Dosage: 120 MG
     Dates: end: 20101228
  7. CISPLATIN [Suspect]
     Dosage: 120 MG
     Dates: end: 20101228
  8. ZOFRAN [Concomitant]
  9. DIAZEPAM [Concomitant]

REACTIONS (4)
  - STRIDOR [None]
  - DIARRHOEA [None]
  - COUGH [None]
  - LETHARGY [None]
